FAERS Safety Report 7580600-0 (Version None)
Quarter: 2011Q2

REPORT INFORMATION
  Report Type: 
  Country: None (occurrence: None)
  Receive Date: 20110629
  Receipt Date: 20110622
  Transmission Date: 20111010
  Serious: Yes (Hospitalization)
  Sender: FDA-Public Use
  Company Number: B0728785A

PATIENT
  Age: 3 Decade
  Sex: Male

DRUGS (2)
  1. LAMICTAL [Suspect]
     Indication: EPILEPSY
     Dosage: 25MG PER DAY
     Route: 048
     Dates: start: 20110525, end: 20110619
  2. VALPROATE SODIUM [Concomitant]
     Dosage: 800MG PER DAY
     Route: 048

REACTIONS (1)
  - SKIN DISORDER [None]
